FAERS Safety Report 8081908-5 (Version None)
Quarter: 2012Q1

REPORT INFORMATION
  Report Type: 
  Country: None (occurrence: None)
  Receive Date: 20120130
  Receipt Date: 20110513
  Transmission Date: 20120608
  Serious: No
  Sender: FDA-Public Use
  Company Number: US-ABBOTT-11P-163-0725721-00

PATIENT
  Sex: Male
  Weight: 106.69 kg

DRUGS (5)
  1. CALCIUM WITH VITAMIN D [Concomitant]
     Indication: PRODUCT USED FOR UNKNOWN INDICATION
  2. LUPRON DEPOT [Suspect]
     Dates: start: 20100101, end: 20110501
  3. LUPRON DEPOT [Suspect]
     Indication: PROSTATE CANCER
     Dosage: UNKNOWN DOSE GIVEN TO HIM AT CLINIC
     Dates: start: 20100101, end: 20100101
  4. UNKNOWN MINERALS [Concomitant]
     Indication: PRODUCT USED FOR UNKNOWN INDICATION
  5. ALENDRONATE SODIUM [Concomitant]
     Indication: OSTEOPOROSIS

REACTIONS (5)
  - OEDEMA PERIPHERAL [None]
  - INSOMNIA [None]
  - DIZZINESS [None]
  - OEDEMA [None]
  - NIGHT SWEATS [None]
